FAERS Safety Report 8448921-7 (Version None)
Quarter: 2012Q2

REPORT INFORMATION
  Report Type: 
  Country: None (occurrence: None)
  Receive Date: 20120619
  Receipt Date: 20120611
  Transmission Date: 20120825
  Serious: Yes (Other)
  Sender: FDA-Public Use
  Company Number: JP-GLAXOSMITHKLINE-B0793952A

PATIENT
  Sex: Female

DRUGS (3)
  1. CYMBALTA [Concomitant]
     Indication: DEPRESSION
     Dosage: 60MG PER DAY
     Route: 048
     Dates: start: 20120127, end: 20120314
  2. LAMICTAL [Suspect]
     Dosage: 50MG PER DAY
     Route: 048
     Dates: start: 20120229, end: 20120314
  3. LAMICTAL [Suspect]
     Indication: DEPRESSION
     Dosage: 25MG PER DAY
     Route: 048
     Dates: start: 20120217, end: 20120228

REACTIONS (2)
  - PIGMENTATION DISORDER [None]
  - ERYTHEMA MULTIFORME [None]
